FAERS Safety Report 9010076 (Version 1)
Quarter: 2013Q1

REPORT INFORMATION
  Report Type: Spontaneous
  Country: US (occurrence: US)
  Receive Date: 20130110
  Receipt Date: 20130110
  Transmission Date: 20140127
  Serious: Yes (Life-Threatening, Other)
  Sender: FDA-Public Use
  Company Number: PHHY2011US02370

PATIENT
  Age: 58 Year
  Sex: Female

DRUGS (6)
  1. CARBAMAZEPINE [Suspect]
     Indication: CONVULSION
     Dosage: 2 DF, TID
     Route: 048
     Dates: end: 200604
  2. ATENOLOL [Concomitant]
     Indication: HYPERTENSION
     Dosage: 50 MG, QD
     Route: 048
     Dates: start: 200904
  3. CLOZAN [Concomitant]
     Indication: ANXIETY
     Dosage: 3.75 MG, QID
     Dates: start: 199211
  4. LEVSIN [Concomitant]
     Indication: IRRITABLE BOWEL SYNDROME
     Dosage: .125 MG, PRN
     Route: 048
     Dates: start: 199509
  5. PREMARIN [Concomitant]
  6. CLOZAPINE [Concomitant]

REACTIONS (9)
  - Apparent death [Unknown]
  - Gastric ulcer perforation [Unknown]
  - Cerebral cyst [Unknown]
  - Colitis [Unknown]
  - Irritable bowel syndrome [Unknown]
  - Fibromyalgia [Unknown]
  - Malaise [Unknown]
  - Abdominal discomfort [Unknown]
  - Nausea [Recovered/Resolved]
